FAERS Safety Report 8001928-6 (Version None)
Quarter: 2011Q4

REPORT INFORMATION
  Report Type: 
  Country: None (occurrence: None)
  Receive Date: 20111222
  Receipt Date: 20111219
  Transmission Date: 20120403
  Serious: Yes (Death)
  Sender: FDA-Public Use
  Company Number: US-PFIZER INC-2011309036

PATIENT
  Age: 75 Year
  Sex: Female

DRUGS (3)
  1. ATENOLOL [Suspect]
     Dosage: UNK
  2. GLIPIZIDE [Suspect]
     Dosage: UNK
  3. METFFORMIN HYDROCHLORIDE [Suspect]
     Dosage: UNK

REACTIONS (2)
  - ADVERSE REACTION [None]
  - TOXICITY TO VARIOUS AGENTS [None]
